FAERS Safety Report 16342385 (Version 16)
Quarter: 2025Q4

REPORT INFORMATION
  Report Type: Spontaneous
  Country: CA (occurrence: CA)
  Receive Date: 20190522
  Receipt Date: 20251106
  Transmission Date: 20260118
  Serious: Yes (Hospitalization, Other)
  Sender: AUROBINDO
  Company Number: CA-AUROBINDO-AUR-APL-2019-027417

PATIENT
  Age: 52 Year
  Sex: Female

DRUGS (64)
  1. CIPROFLOXACIN [Suspect]
     Active Substance: CIPROFLOXACIN
     Indication: Product used for unknown indication
     Dosage: UNK
     Route: 065
  2. OLANZAPINE [Suspect]
     Active Substance: OLANZAPINE
     Indication: Psychotic disorder
     Dosage: 5 MILLIGRAM, ONCE A DAY
     Route: 048
  3. OLANZAPINE [Suspect]
     Active Substance: OLANZAPINE
     Dosage: 12.5 MILLIGRAM, ONCE A DAY
     Route: 048
  4. QUETIAPINE [Suspect]
     Active Substance: QUETIAPINE
     Indication: Psychotic disorder
     Dosage: 50 MILLIGRAM, ONCE A DAY
     Route: 048
  5. ACETAMINOPHEN [Suspect]
     Active Substance: ACETAMINOPHEN
     Indication: Pain in extremity
     Dosage: 650 MILLIGRAM, AS REQUIRED
     Route: 048
  6. ACLIDINIUM BROMIDE [Suspect]
     Active Substance: ACLIDINIUM BROMIDE
     Indication: Product used for unknown indication
     Dosage: UNK
     Route: 065
  7. ATROVENT [Suspect]
     Active Substance: IPRATROPIUM BROMIDE
     Indication: Product used for unknown indication
     Dosage: UNK
     Route: 065
  8. APTIVUS [Suspect]
     Active Substance: TIPRANAVIR
     Indication: HIV infection
     Dosage: 500 MILLIGRAM, ONCE A DAY
     Route: 048
  9. APTIVUS [Suspect]
     Active Substance: TIPRANAVIR
     Dosage: 650 MILLIGRAM, ONCE A DAY
     Route: 048
  10. BREO ELLIPTA [Suspect]
     Active Substance: FLUTICASONE FUROATE\VILANTEROL TRIFENATATE
     Indication: Product used for unknown indication
     Dosage: UNK
  11. CLONAZEPAM [Suspect]
     Active Substance: CLONAZEPAM
     Indication: Hypomania
     Dosage: 3 MILLIGRAM, ONCE A DAY
     Route: 048
  12. CLONAZEPAM [Suspect]
     Active Substance: CLONAZEPAM
     Dosage: 30 MILLIGRAM, ONCE A DAY
     Route: 048
  13. DIAZEPAM [Suspect]
     Active Substance: DIAZEPAM
     Indication: Depression
     Dosage: 1500 MILLIGRAM, ONCE A DAY
     Route: 048
  14. DIAZEPAM [Suspect]
     Active Substance: DIAZEPAM
     Dosage: 250 MILLIGRAM, TWO TIMES A DAY
     Route: 048
  15. DIAZEPAM [Suspect]
     Active Substance: DIAZEPAM
     Dosage: 2750 MILLIGRAM
     Route: 048
  16. DIAZEPAM [Suspect]
     Active Substance: DIAZEPAM
     Indication: Depression
     Dosage: 250 MILLIGRAM, TWO TIMES A DAY
     Route: 048
  17. DIAZEPAM [Suspect]
     Active Substance: DIAZEPAM
     Dosage: 2750 MILLIGRAM
     Route: 048
  18. GLYCOPYRRONIUM [Suspect]
     Active Substance: GLYCOPYRRONIUM
     Indication: Product used for unknown indication
     Dosage: UNK
     Route: 065
  19. SPIRIVA [Suspect]
     Active Substance: TIOTROPIUM BROMIDE MONOHYDRATE
     Indication: Product used for unknown indication
     Dosage: UNK
     Route: 065
  20. MEPOLIZUMAB [Suspect]
     Active Substance: MEPOLIZUMAB
     Indication: Product used for unknown indication
     Dosage: UNK
     Route: 065
  21. MOXIFLOXACIN\PREDNISOLONE [Suspect]
     Active Substance: MOXIFLOXACIN\PREDNISOLONE
     Indication: Product used for unknown indication
     Dosage: UNK
     Route: 065
  22. OMNARIS [Suspect]
     Active Substance: CICLESONIDE
     Indication: Product used for unknown indication
     Dosage: UNK
     Route: 065
  23. AZITHROMYCIN ANHYDROUS [Suspect]
     Active Substance: AZITHROMYCIN ANHYDROUS
     Indication: Product used for unknown indication
     Dosage: UNK
     Route: 065
  24. TIPRANAVIR [Suspect]
     Active Substance: TIPRANAVIR
     Indication: Product used for unknown indication
     Dosage: 500 MILLIGRAM, ONCE A DAY
     Route: 048
  25. PREDNISONE [Suspect]
     Active Substance: PREDNISONE
     Indication: Product used for unknown indication
     Dosage: UNK
     Route: 065
  26. PROCYCLIDINE HYDROCHLORIDE [Suspect]
     Active Substance: PROCYCLIDINE HYDROCHLORIDE
     Indication: Prophylaxis
     Dosage: 2.5 MILLIGRAM, ONCE A DAY
     Route: 048
  27. PROCYCLIDINE HYDROCHLORIDE [Suspect]
     Active Substance: PROCYCLIDINE HYDROCHLORIDE
     Indication: Musculoskeletal stiffness
     Dosage: 2.5 MILLIGRAM, ONCE A DAY
     Route: 048
  28. RISPERIDONE [Suspect]
     Active Substance: RISPERIDONE
     Indication: Psychotic disorder
     Dosage: 3.0 MILLIGRAM, ONCE A DAY
     Route: 048
  29. ALBUTEROL [Suspect]
     Active Substance: ALBUTEROL
     Indication: Product used for unknown indication
     Dosage: UNK
     Route: 065
  30. SINGULAIR [Suspect]
     Active Substance: MONTELUKAST SODIUM
     Indication: Product used for unknown indication
     Dosage: UNK
     Route: 065
  31. TEGRETOL [Suspect]
     Active Substance: CARBAMAZEPINE
     Indication: Hypomania
     Dosage: 200 MILLIGRAM, TWO TIMES A DAY
     Route: 048
  32. TRAZODONE [Suspect]
     Active Substance: TRAZODONE HYDROCHLORIDE
     Indication: Depression
     Dosage: 50 MILLIGRAM, ONCE A DAY
     Route: 048
  33. TRAZODONE [Suspect]
     Active Substance: TRAZODONE HYDROCHLORIDE
     Indication: Depression
     Dosage: 50 MILLIGRAM, ONCE A DAY
     Route: 048
  34. DIVALPROEX SODIUM [Suspect]
     Active Substance: DIVALPROEX SODIUM
     Indication: Product used for unknown indication
     Dosage: 1500 MILLIGRAM, ONCE A DAY
     Route: 048
  35. DIVALPROEX SODIUM [Suspect]
     Active Substance: DIVALPROEX SODIUM
     Dosage: 250 MILLIGRAM, TWO TIMES A DAY
     Route: 048
  36. DIVALPROEX SODIUM [Suspect]
     Active Substance: DIVALPROEX SODIUM
     Dosage: 2750 MILLIGRAM, TWO TIMES A DAY
     Route: 048
  37. DIVALPROEX SODIUM [Suspect]
     Active Substance: DIVALPROEX SODIUM
     Dosage: 1500 MILLIGRAM, TWO TIMES A DAY
     Route: 048
  38. TIOTROPIUM BROMIDE MONOHYDRATE [Suspect]
     Active Substance: TIOTROPIUM BROMIDE MONOHYDRATE
     Indication: Product used for unknown indication
     Dosage: UNK
     Route: 065
  39. UMECLIDINIUM BROMIDE [Suspect]
     Active Substance: UMECLIDINIUM BROMIDE
     Indication: Product used for unknown indication
     Dosage: UNK
     Route: 065
  40. GLYCOPYRRONIUM\INDACATEROL [Suspect]
     Active Substance: GLYCOPYRRONIUM\INDACATEROL
     Indication: Product used for unknown indication
     Dosage: UNK
     Route: 065
  41. ZENHALE [Suspect]
     Active Substance: FORMOTEROL FUMARATE\MOMETASONE FUROATE
     Indication: Product used for unknown indication
     Dosage: UNK
     Route: 065
  42. ZYPREXA [Suspect]
     Active Substance: OLANZAPINE
     Indication: Psychotic disorder
     Dosage: 12.5 MILLIGRAM, ONCE A DAY
     Route: 048
  43. ZYPREXA [Suspect]
     Active Substance: OLANZAPINE
     Dosage: 5 MILLIGRAM, ONCE A DAY
     Route: 048
  44. LAMIVUDINE [Concomitant]
     Active Substance: LAMIVUDINE
     Indication: Product used for unknown indication
     Dosage: UNK
     Route: 065
  45. ACRIVASTINE [Concomitant]
     Active Substance: ACRIVASTINE
     Indication: Product used for unknown indication
     Dosage: UNK
     Route: 065
  46. ABACAVIR [Concomitant]
     Active Substance: ABACAVIR
     Indication: Product used for unknown indication
     Dosage: UNK
     Route: 065
  47. BENADRYL [Concomitant]
     Active Substance: DIPHENHYDRAMINE HYDROCHLORIDE
     Indication: Product used for unknown indication
     Dosage: UNK
     Route: 065
  48. BISACODYL [Concomitant]
     Active Substance: BISACODYL
     Indication: Product used for unknown indication
     Dosage: UNK
     Route: 065
  49. CALCIUM CARBONATE [Concomitant]
     Active Substance: CALCIUM CARBONATE
     Indication: Product used for unknown indication
     Dosage: UNK
     Route: 065
  50. CHLORAL HYDRATE [Concomitant]
     Active Substance: CHLORAL HYDRATE
     Indication: Product used for unknown indication
     Dosage: UNK
     Route: 065
  51. ENFUVIRTIDE [Concomitant]
     Active Substance: ENFUVIRTIDE
     Indication: Product used for unknown indication
     Dosage: UNK
     Route: 065
  52. IMODIUM [Concomitant]
     Active Substance: LOPERAMIDE HYDROCHLORIDE
     Indication: Product used for unknown indication
     Dosage: UNK
     Route: 065
  53. KALETRA [Concomitant]
     Active Substance: LOPINAVIR\RITONAVIR
     Indication: Product used for unknown indication
     Dosage: UNK
     Route: 065
  54. LACTULOSE [Concomitant]
     Active Substance: LACTULOSE
     Indication: Product used for unknown indication
     Dosage: UNK
     Route: 065
  55. LACTULOSE [Concomitant]
     Active Substance: LACTULOSE
     Indication: Product used for unknown indication
     Dosage: UNK
     Route: 065
  56. LITHIUM [Concomitant]
     Active Substance: LITHIUM
     Indication: Product used for unknown indication
     Dosage: UNK
     Route: 065
  57. VITAMINS [Concomitant]
     Active Substance: VITAMINS
     Indication: Product used for unknown indication
     Dosage: UNK
     Route: 065
  58. NYSTATIN\ZINC OXIDE [Concomitant]
     Active Substance: NYSTATIN\ZINC OXIDE
     Indication: Product used for unknown indication
     Dosage: UNK
     Route: 065
  59. NYSTATIN [Concomitant]
     Active Substance: NYSTATIN
     Indication: Product used for unknown indication
     Dosage: UNK
     Route: 065
  60. PROCYCLIDINE HYDROCHLORIDE [Concomitant]
     Active Substance: PROCYCLIDINE HYDROCHLORIDE
     Indication: Prophylaxis
     Dosage: 2.5 MILLIGRAM, ONCE A DAY
     Route: 048
  61. PROCYCLIDINE HYDROCHLORIDE [Concomitant]
     Active Substance: PROCYCLIDINE HYDROCHLORIDE
     Indication: Musculoskeletal stiffness
  62. SERTRALINE [Concomitant]
     Active Substance: SERTRALINE HYDROCHLORIDE
     Indication: Product used for unknown indication
     Dosage: UNK
     Route: 065
  63. ENFUVIRTIDE [Concomitant]
     Active Substance: ENFUVIRTIDE
     Indication: Product used for unknown indication
     Dosage: UNK
     Route: 065
  64. Teva atovaquone proguanil [Concomitant]
     Indication: Product used for unknown indication
     Dosage: UNK
     Route: 065

REACTIONS (26)
  - Blood bilirubin increased [Recovered/Resolved]
  - Cholelithiasis [Recovered/Resolved]
  - Condition aggravated [Recovered/Resolved]
  - Hepatic enzyme increased [Recovered/Resolved]
  - Hepatotoxicity [Recovered/Resolved]
  - Hypomania [Recovered/Resolved]
  - Jaundice cholestatic [Recovered/Resolved]
  - Nausea [Recovered/Resolved]
  - Pneumonia [Recovered/Resolved]
  - Psychotic disorder [Recovered/Resolved]
  - Schizophrenia [Recovered/Resolved]
  - Vomiting [Recovered/Resolved]
  - Asthma-chronic obstructive pulmonary disease overlap syndrome [Recovered/Resolved]
  - Bronchiectasis [Recovered/Resolved]
  - Cardiac murmur [Recovered/Resolved]
  - Chronic obstructive pulmonary disease [Recovered/Resolved]
  - Gastrooesophageal reflux disease [Recovered/Resolved]
  - Nasal polyps [Recovered/Resolved]
  - Lung neoplasm malignant [Recovered/Resolved]
  - Oedema peripheral [Recovered/Resolved]
  - Rhinitis allergic [Recovered/Resolved]
  - Sarcoidosis [Recovered/Resolved]
  - Total lung capacity increased [Recovered/Resolved]
  - Wheezing [Recovered/Resolved]
  - Product use in unapproved indication [Recovered/Resolved]
  - Off label use [Recovered/Resolved]
